FAERS Safety Report 13244505 (Version 1)
Quarter: 2017Q1

REPORT INFORMATION
  Report Type: Spontaneous
  Country: US (occurrence: US)
  Receive Date: 20170216
  Receipt Date: 20170216
  Transmission Date: 20170428
  Serious: No
  Sender: FDA-Public Use
  Company Number: US-JAZZ-2017-US-000377

PATIENT
  Sex: Female

DRUGS (36)
  1. MOTRIN [Concomitant]
     Active Substance: IBUPROFEN
  2. METOPROLOL SUCC CT [Concomitant]
  3. VITAMIN D3 [Concomitant]
     Active Substance: CHOLECALCIFEROL
  4. ZOVIRAX [Concomitant]
     Active Substance: ACYCLOVIR
  5. BYSTOLIC [Concomitant]
     Active Substance: NEBIVOLOL HYDROCHLORIDE
  6. LEVOTHYROXINE. [Concomitant]
     Active Substance: LEVOTHYROXINE
  7. PANTOPRAZOLE [Concomitant]
     Active Substance: PANTOPRAZOLE SODIUM
  8. TIZANIDINE. [Concomitant]
     Active Substance: TIZANIDINE
  9. VIIBRYD [Concomitant]
     Active Substance: VILAZODONE HYDROCHLORIDE
  10. CAMBIA [Concomitant]
     Active Substance: DICLOFENAC POTASSIUM
  11. LANSOPRAZOLE. [Concomitant]
     Active Substance: LANSOPRAZOLE
  12. FOLIC ACID. [Concomitant]
     Active Substance: FOLIC ACID
  13. FENTANYL. [Concomitant]
     Active Substance: FENTANYL
  14. FOLBIC [Concomitant]
     Active Substance: CYANOCOBALAMIN\FOLIC ACID\PYRIDOXINE
  15. XYREM [Suspect]
     Active Substance: SODIUM OXYBATE
     Dosage: DOSE ADJUSTMENT
     Route: 048
     Dates: start: 2003, end: 2013
  16. SILVADENE [Concomitant]
     Active Substance: SILVER SULFADIAZINE
  17. ABILIFY [Concomitant]
     Active Substance: ARIPIPRAZOLE
  18. SPIRONOLACTONE. [Concomitant]
     Active Substance: SPIRONOLACTONE
  19. OLANZAPINE. [Concomitant]
     Active Substance: OLANZAPINE
  20. ASPIRIN                            /00002701/ [Concomitant]
     Active Substance: ASPIRIN
  21. METHADONE [Concomitant]
     Active Substance: METHADONE HYDROCHLORIDE
  22. VOLTAREN [Concomitant]
     Active Substance: DICLOFENAC SODIUM
  23. FUROSEMIDE. [Concomitant]
     Active Substance: FUROSEMIDE
  24. XYREM [Suspect]
     Active Substance: SODIUM OXYBATE
     Dosage: 4.5 G, BID
     Route: 048
     Dates: start: 2013
  25. A-HYDROCORT [Concomitant]
     Active Substance: HYDROCORTISONE SODIUM SUCCINATE
  26. DEPAKOTE [Concomitant]
     Active Substance: DIVALPROEX SODIUM
  27. ESTRADIOL. [Concomitant]
     Active Substance: ESTRADIOL
  28. GABAPENTIN. [Concomitant]
     Active Substance: GABAPENTIN
  29. LAMICTAL [Concomitant]
     Active Substance: LAMOTRIGINE
  30. CLONAZEPAM. [Concomitant]
     Active Substance: CLONAZEPAM
  31. HYDROMORPHONE [Concomitant]
     Active Substance: HYDROMORPHONE
  32. HYDROCORTISONE. [Concomitant]
     Active Substance: HYDROCORTISONE
  33. XYREM [Suspect]
     Active Substance: SODIUM OXYBATE
     Indication: NARCOLEPSY
     Dosage: 3 G, BID
     Route: 048
     Dates: start: 200306, end: 2003
  34. ENALAPRIL MALEATE. [Concomitant]
     Active Substance: ENALAPRIL MALEATE
  35. SYMBICORT [Concomitant]
     Active Substance: BUDESONIDE\FORMOTEROL FUMARATE DIHYDRATE
  36. XYZAL [Concomitant]
     Active Substance: LEVOCETIRIZINE DIHYDROCHLORIDE

REACTIONS (3)
  - Muscular weakness [Unknown]
  - Migraine [Unknown]
  - Dizziness [Unknown]
